FAERS Safety Report 5615287-7 (Version None)
Quarter: 2008Q1

REPORT INFORMATION
  Report Type: 
  Country: None (occurrence: None)
  Receive Date: 20080206
  Receipt Date: 20080131
  Transmission Date: 20080703
  Serious: Yes (Hospitalization)
  Sender: FDA-Public Use
  Company Number: PHRM2008FR00750

PATIENT
  Age: 57 Year
  Sex: Male
  Weight: 93 kg

DRUGS (5)
  1. VOLTAREN [Suspect]
     Indication: BACK PAIN
     Dosage: 100 MG, BID
     Route: 048
     Dates: start: 20051201
  2. DI-ANTALVIC [Concomitant]
     Dosage: 3 DF, BID
  3. MOPRAL [Concomitant]
     Dosage: 1 DF, QD
  4. COVERSYL [Concomitant]
     Dosage: 4 MG, QD
  5. KARDEGIC [Concomitant]

REACTIONS (3)
  - INTERVERTEBRAL DISC DISORDER [None]
  - INTERVERTEBRAL DISC OPERATION [None]
  - RENAL VESSEL DISORDER [None]
